FAERS Safety Report 8174501-7 (Version None)
Quarter: 2012Q1

REPORT INFORMATION
  Report Type: 
  Country: None (occurrence: None)
  Receive Date: 20120229
  Receipt Date: 20120227
  Transmission Date: 20120608
  Serious: Yes (Hospitalization, Other)
  Sender: FDA-Public Use
  Company Number: US-ABBOTT-12P-163-0908951-00

PATIENT
  Sex: Male

DRUGS (2)
  1. HUMIRA [Suspect]
     Indication: HIDRADENITIS
  2. HUMIRA [Suspect]
     Dates: start: 20101201, end: 20110301

REACTIONS (35)
  - LUPUS-LIKE SYNDROME [None]
  - JOINT STIFFNESS [None]
  - PAIN [None]
  - EMOTIONAL DISTRESS [None]
  - FATIGUE [None]
  - ABASIA [None]
  - LUNG NEOPLASM [None]
  - SCAR [None]
  - OFF LABEL USE [None]
  - SKIN LESION [None]
  - DRY SKIN [None]
  - SKIN FISSURES [None]
  - VISION BLURRED [None]
  - RHEUMATOID ARTHRITIS [None]
  - PYREXIA [None]
  - ASTHENIA [None]
  - LETHARGY [None]
  - DEFORMITY [None]
  - INJURY [None]
  - WEIGHT DECREASED [None]
  - ARTHRITIS [None]
  - CORNEAL ABRASION [None]
  - DEPRESSION [None]
  - NIGHT SWEATS [None]
  - ARTHRALGIA [None]
  - CONSTIPATION [None]
  - LUNG INFECTION [None]
  - MASS [None]
  - SWELLING FACE [None]
  - EYE DISORDER [None]
  - DOUBLE STRANDED DNA ANTIBODY POSITIVE [None]
  - OPPORTUNISTIC INFECTION [None]
  - DECREASED APPETITE [None]
  - MYALGIA [None]
  - HIDRADENITIS [None]
